FAERS Safety Report 20532098 (Version 1)
Quarter: 2022Q1

REPORT INFORMATION
  Report Type: Spontaneous
  Country: US (occurrence: US)
  Receive Date: 20220301
  Receipt Date: 20220301
  Transmission Date: 20220423
  Serious: No
  Sender: FDA-Public Use
  Company Number: US-BAYER-2022A016377

PATIENT
  Age: 62 Year
  Sex: Male
  Weight: 76.19 kg

DRUGS (7)
  1. CLARITIN [Suspect]
     Active Substance: LORATADINE
  2. HUMIRA [Concomitant]
     Active Substance: ADALIMUMAB
     Indication: Rheumatoid arthritis
     Dosage: 1 IN 14 D
     Route: 058
     Dates: start: 2018
  3. ATORVASTATIN [Concomitant]
     Active Substance: ATORVASTATIN
     Dosage: UNK
     Route: 048
     Dates: start: 1984
  4. FOLIC ACID [Concomitant]
     Active Substance: FOLIC ACID
     Dosage: UNK
     Route: 048
     Dates: start: 2013
  5. VITAMIN D NOS [Concomitant]
     Active Substance: VITAMIN D NOS
     Indication: Vitamin D deficiency
     Dosage: UNK
     Route: 048
     Dates: start: 201808
  6. GLUCOSAMINE + CHONDORITIN [Concomitant]
     Indication: Analgesic therapy
     Dosage: UNK
     Dates: start: 201312
  7. LOPID [Concomitant]
     Active Substance: GEMFIBROZIL
     Dosage: UNK
     Route: 048
     Dates: start: 201705

REACTIONS (3)
  - Somnolence [Unknown]
  - Osteoarthritis [Unknown]
  - Multiple allergies [Unknown]

NARRATIVE: CASE EVENT DATE: 20190101
